FAERS Safety Report 9179378 (Version 1)
Quarter: 2012Q4

REPORT INFORMATION
  Report Type: 
  Country: DK (occurrence: CH)
  Receive Date: 20121029
  Receipt Date: 20121029
  Transmission Date: 20130627
  Serious: Yes (Other)
  Sender: FDA-Public Use
  Company Number: CH-FRI-1000039792

PATIENT
  Sex: Female
  Weight: 68 kg

DRUGS (2)
  1. ESCITALOPRAM [Suspect]
     Indication: DEPRESSION
     Dosage: 10 mg
     Route: 048
     Dates: start: 2004
  2. ESCITALOPRAM [Suspect]
     Indication: ANXIETY

REACTIONS (1)
  - Bladder cancer [Not Recovered/Not Resolved]
